FAERS Safety Report 19609555 (Version 1)
Quarter: 2021Q3

REPORT INFORMATION
  Report Type: Spontaneous
  Country: PT (occurrence: PT)
  Receive Date: 20210726
  Receipt Date: 20210726
  Transmission Date: 20211014
  Serious: Yes (Hospitalization, Other)
  Sender: FDA-Public Use
  Company Number: PT-MYLANLABS-2019M1087012

PATIENT
  Age: 43 Year
  Sex: Female

DRUGS (4)
  1. TERBINAFINE. [Suspect]
     Active Substance: TERBINAFINE
     Dosage: 1 DOSAGE FORM, QD (2 WEEKS BEFORE)
     Route: 048
  2. TERBINAFINE. [Suspect]
     Active Substance: TERBINAFINE
     Indication: ONYCHOMYCOSIS
     Dosage: 1 DOSAGE FORM, QD
     Route: 048
  3. TERBINAFINE. [Suspect]
     Active Substance: TERBINAFINE
     Dosage: UNK UNK, QD
     Route: 048
  4. TERBINAFINE. [Suspect]
     Active Substance: TERBINAFINE
     Dosage: UNK UNK, Q2W (DAILY)
     Route: 048

REACTIONS (3)
  - Skin lesion [Recovered/Resolved]
  - Erythema multiforme [Recovered/Resolved]
  - Rash pruritic [Recovered/Resolved]
